FAERS Safety Report 13690366 (Version 1)
Quarter: 2017Q2

REPORT INFORMATION
  Report Type: Spontaneous
  Country: CA (occurrence: CA)
  Receive Date: 20170626
  Receipt Date: 20170626
  Transmission Date: 20170830
  Serious: Yes (Other)
  Sender: FDA-Public Use
  Company Number: CA-PFIZER INC-2017273212

PATIENT
  Age: 66 Year
  Sex: Female

DRUGS (1)
  1. GD-AMLODIPINE [Suspect]
     Active Substance: AMLODIPINE BESYLATE
     Dosage: 5 MG, 1X/DAY
     Dates: start: 2014

REACTIONS (5)
  - Chest discomfort [Unknown]
  - Blood pressure inadequately controlled [Unknown]
  - Loss of consciousness [Unknown]
  - Dizziness [Unknown]
  - Product commingling [None]

NARRATIVE: CASE EVENT DATE: 20170526
